FAERS Safety Report 11345777 (Version 1)
Quarter: 2015Q3

REPORT INFORMATION
  Report Type: Spontaneous
  Country: US (occurrence: US)
  Receive Date: 20150806
  Receipt Date: 20150806
  Transmission Date: 20151125
  Serious: No
  Sender: FDA-Public Use
  Company Number: US-ABBVIE-15P-163-1426216-00

PATIENT
  Sex: Female

DRUGS (2)
  1. DIVALPROEX SOD ER [Suspect]
     Active Substance: DIVALPROEX SODIUM
     Indication: TEMPORAL LOBE EPILEPSY
     Route: 065
     Dates: start: 2005, end: 201504
  2. DIVALPROEX SODIUM. [Suspect]
     Active Substance: DIVALPROEX SODIUM
     Indication: TEMPORAL LOBE EPILEPSY
     Route: 065
     Dates: start: 201504

REACTIONS (2)
  - Temporal lobe epilepsy [Unknown]
  - Aura [Unknown]

NARRATIVE: CASE EVENT DATE: 201506
